FAERS Safety Report 5253787-2 (Version None)
Quarter: 2007Q1

REPORT INFORMATION
  Report Type: 
  Country: None (occurrence: None)
  Receive Date: 20070227
  Receipt Date: 20070209
  Transmission Date: 20070707
  Serious: Yes (Death)
  Sender: FDA-Public Use
  Company Number: 15692

PATIENT
  Sex: Female

DRUGS (3)
  1. METHOTREXATE [Suspect]
     Indication: BREAST CANCER
     Dosage: 40 MG/M2 FREQ IV
     Route: 042
  2. FLUOROURACIL [Suspect]
     Indication: BREAST CANCER
     Dosage: 600 MG/M2 FREQ IV
     Route: 042
  3. CYCLOPHOSPHAMIDE [Suspect]
     Indication: BREAST CANCER
     Dosage: 100 MG/M2 FREQ PO
     Route: 048

REACTIONS (1)
  - PULMONARY EMBOLISM [None]
